FAERS Safety Report 14171272 (Version 1)
Quarter: 2017Q4

REPORT INFORMATION
  Report Type: Spontaneous
  Country: US (occurrence: US)
  Receive Date: 20171108
  Receipt Date: 20171108
  Transmission Date: 20180321
  Serious: No
  Sender: FDA-Public Use
  Company Number: US-009507513-1711USA003274

PATIENT
  Age: 86 Year
  Sex: Male

DRUGS (6)
  1. ASPIRIN. [Concomitant]
     Active Substance: ASPIRIN
  2. REMERON [Suspect]
     Active Substance: MIRTAZAPINE
     Indication: ANXIETY
  3. LEXAPRO [Concomitant]
     Active Substance: ESCITALOPRAM OXALATE
  4. REMERON [Suspect]
     Active Substance: MIRTAZAPINE
     Indication: SLEEP DISORDER THERAPY
     Dosage: UNK, QPM
     Route: 048
     Dates: start: 2015, end: 20171031
  5. METOPROLOL. [Concomitant]
     Active Substance: METOPROLOL
  6. VITAMINS (UNSPECIFIED) [Concomitant]
     Active Substance: VITAMINS

REACTIONS (5)
  - Fatigue [Not Recovered/Not Resolved]
  - Confusional state [Not Recovered/Not Resolved]
  - Weight increased [Not Recovered/Not Resolved]
  - Hypokinesia [Not Recovered/Not Resolved]
  - Lethargy [Not Recovered/Not Resolved]

NARRATIVE: CASE EVENT DATE: 20171104
